FAERS Safety Report 16392938 (Version 1)
Quarter: 2019Q2

REPORT INFORMATION
  Report Type: Spontaneous
  Country: US (occurrence: US)
  Receive Date: 20190604
  Receipt Date: 20190604
  Transmission Date: 20190711
  Serious: Yes (Hospitalization)
  Sender: FDA-Public Use
  Company Number: None

PATIENT
  Age: 44 Year
  Sex: Male

DRUGS (1)
  1. KRATOM [Suspect]
     Active Substance: HERBALS\MITRAGYNINE

REACTIONS (4)
  - Acute myocardial infarction [None]
  - Ventricular fibrillation [None]
  - Coronary artery occlusion [None]
  - Hypertensive emergency [None]

NARRATIVE: CASE EVENT DATE: 20190531
